FAERS Safety Report 19118515 (Version 1)
Quarter: 2021Q2

REPORT INFORMATION
  Report Type: Report from Study
  Country: US (occurrence: US)
  Receive Date: 20210409
  Receipt Date: 20210409
  Transmission Date: 20210717
  Serious: Yes (Other)
  Sender: FDA-Public Use
  Company Number: US-JAZZ-2020-US-012413

PATIENT
  Age: 55 Year
  Sex: Male

DRUGS (13)
  1. COLCHICINE. [Concomitant]
     Active Substance: COLCHICINE
  2. XYREM [Suspect]
     Active Substance: SODIUM OXYBATE
     Indication: CATAPLEXY
     Dosage: 2.5 GRAM, BID
     Route: 048
     Dates: start: 200611, end: 202005
  3. XYREM [Suspect]
     Active Substance: SODIUM OXYBATE
     Indication: NARCOLEPSY
     Dosage: 2.25 GRAM, BID
     Route: 048
     Dates: start: 200505, end: 200611
  4. TYLENOL WITH CODEINE [Concomitant]
     Active Substance: ACETAMINOPHEN\CODEINE PHOSPHATE
  5. XYREM [Suspect]
     Active Substance: SODIUM OXYBATE
     Dosage: 3 GRAM, BID
     Route: 048
     Dates: start: 202005
  6. BELVIQ [Concomitant]
     Active Substance: LORCASERIN HYDROCHLORIDE
  7. PROTRIPTYLINE HCL [Concomitant]
     Active Substance: PROTRIPTYLINE HYDROCHLORIDE
  8. CYCLOBENZAPRINE. [Concomitant]
     Active Substance: CYCLOBENZAPRINE
  9. ACETAMINOPHEN;CODEINE [Concomitant]
     Active Substance: ACETAMINOPHEN\CODEINE PHOSPHATE
  10. PREDNISONE. [Concomitant]
     Active Substance: PREDNISONE
  11. ALLOPURINOL. [Concomitant]
     Active Substance: ALLOPURINOL
  12. PAXIL [PIROXICAM] [Concomitant]
     Active Substance: PIROXICAM
  13. PROVIGIL [Concomitant]
     Active Substance: MODAFINIL

REACTIONS (3)
  - Varicose veins pelvic [Not Recovered/Not Resolved]
  - Blood pressure abnormal [Unknown]
  - Cellulitis [Unknown]

NARRATIVE: CASE EVENT DATE: 20200921
